FAERS Safety Report 6827865-8 (Version None)
Quarter: 2010Q3

REPORT INFORMATION
  Report Type: 
  Country: None (occurrence: None)
  Receive Date: 20100709
  Receipt Date: 20100701
  Transmission Date: 20110219
  Serious: Yes (Hospitalization)
  Sender: FDA-Public Use
  Company Number: A0811180A

PATIENT
  Age: 55 Year
  Sex: Male

DRUGS (2)
  1. AVANDIA [Suspect]
     Dosage: 4MG PER DAY
     Route: 048
     Dates: start: 20020807, end: 20071201
  2. AVANDAMET [Suspect]
     Route: 048
     Dates: start: 20030204, end: 20060126

REACTIONS (1)
  - CEREBROVASCULAR ACCIDENT [None]
